FAERS Safety Report 5121401-2 (Version None)
Quarter: 2007Q1

REPORT INFORMATION
  Report Type: 
  Country: None (occurrence: None)
  Receive Date: 20061002
  Receipt Date: 20060915
  Transmission Date: 20070707
  Serious: Yes (Hospitalization)
  Sender: FDA-Public Use
  Company Number: 2006PV020493

PATIENT
  Age: 71 Year
  Sex: Male

DRUGS (3)
  1. BYETTA [Suspect]
     Indication: DIABETES MELLITUS NON-INSULIN-DEPENDENT
     Dosage: 5 MCG; BID; SC
     Route: 058
     Dates: start: 20060101
  2. METFORMIN HCL [Concomitant]
  3. ACTOS [Concomitant]

REACTIONS (1)
  - CARDIOMYOPATHY [None]
